FAERS Safety Report 15837685 (Version 3)
Quarter: 2019Q1

REPORT INFORMATION
  Report Type: Report from Study
  Country: US (occurrence: US)
  Receive Date: 20190117
  Receipt Date: 20190304
  Transmission Date: 20190417
  Serious: Yes (Hospitalization, Other)
  Sender: FDA-Public Use
  Company Number: US-ROCHE-2047267

PATIENT
  Sex: Male
  Weight: 91.8 kg

DRUGS (16)
  1. HYDROCORTISONE. [Concomitant]
     Active Substance: HYDROCORTISONE
     Route: 048
  2. ASPIRIN. [Concomitant]
     Active Substance: ASPIRIN
     Route: 048
  3. NUTROPIN AQ [Suspect]
     Active Substance: SOMATROPIN
     Indication: GROWTH HORMONE DEFICIENCY
     Dosage: NUSPIN 5 (0.05 MG DOSING INCREMENTS, 7 INJECTIONS PER WEEK, DISPENSED 1 MONTH SUPPLY AND REFILLED 11
     Route: 058
  4. NUTROPIN AQ [Suspect]
     Active Substance: SOMATROPIN
     Indication: HYPOPITUITARISM
  5. HYDROCHLOROTHIAZIDE. [Concomitant]
     Active Substance: HYDROCHLOROTHIAZIDE
     Route: 048
  6. BUPROPION. [Concomitant]
     Active Substance: BUPROPION
     Route: 048
  7. COLACE [Concomitant]
     Active Substance: DOCUSATE SODIUM
     Route: 048
  8. LEVOTHYROXINE. [Concomitant]
     Active Substance: LEVOTHYROXINE
     Route: 048
  9. PRAVASTATIN. [Concomitant]
     Active Substance: PRAVASTATIN
     Route: 048
  10. DILAUDID [Concomitant]
     Active Substance: HYDROMORPHONE HYDROCHLORIDE
     Dosage: PRN
     Route: 048
  11. IMDUR [Concomitant]
     Active Substance: ISOSORBIDE MONONITRATE
     Route: 048
  12. FERROUS SULFATE. [Concomitant]
     Active Substance: FERROUS SULFATE
     Dosage: DAILY
     Route: 048
  13. LISINOPRIL. [Concomitant]
     Active Substance: LISINOPRIL
     Route: 048
  14. METHADONE [Concomitant]
     Active Substance: METHADONE HYDROCHLORIDE
     Route: 048
  15. TESTOSTERONE CYPIONATE. [Concomitant]
     Active Substance: TESTOSTERONE CYPIONATE
     Dosage: 200 MG/ML
     Route: 030
  16. WELLBUTRIN [Concomitant]
     Active Substance: BUPROPION HYDROCHLORIDE
     Route: 048

REACTIONS (2)
  - Pancreatitis [Recovering/Resolving]
  - Upper gastrointestinal haemorrhage [Unknown]
